FAERS Safety Report 8091802-1 (Version None)
Quarter: 2012Q1

REPORT INFORMATION
  Report Type: 
  Country: None (occurrence: None)
  Receive Date: 20120130
  Receipt Date: 20120130
  Transmission Date: 20120608
  Serious: Yes (Death)
  Sender: FDA-Public Use
  Company Number: None

PATIENT
  Age: 37 Year
  Sex: Female
  Weight: 50.1 kg

DRUGS (2)
  1. EMTRICITABINE/TENOFOVIR DISOPROXIL FUMARATE [Suspect]
     Indication: HIV INFECTION
     Dosage: 200/300 MG QD ORAL
     Route: 048
     Dates: start: 20110609, end: 20111225
  2. LOPINAVIR/RITONAVIR [Suspect]
     Indication: HIV INFECTION
     Dosage: 400/100 MG BID ORAL
     Route: 048
     Dates: start: 20110609, end: 20111225

REACTIONS (20)
  - CHEST PAIN [None]
  - RESPIRATORY DISTRESS [None]
  - PNEUMONIA [None]
  - LACTIC ACIDOSIS [None]
  - RENAL FAILURE [None]
  - ANAEMIA [None]
  - VOMITING [None]
  - DECREASED APPETITE [None]
  - DEHYDRATION [None]
  - DRUG INEFFECTIVE [None]
  - WHITE BLOOD CELL COUNT INCREASED [None]
  - WEIGHT DECREASED [None]
  - ASTHENIA [None]
  - MUSCULOSKELETAL STIFFNESS [None]
  - HAEMOGLOBIN DECREASED [None]
  - ARTHROPATHY [None]
  - HEADACHE [None]
  - COUGH [None]
  - BURNING SENSATION [None]
  - PALLOR [None]
